FAERS Safety Report 5935012-X (Version None)
Quarter: 2008Q4

REPORT INFORMATION
  Report Type: 
  Country: None (occurrence: None)
  Receive Date: 20081015
  Receipt Date: 20080811
  Transmission Date: 20090506
  Serious: Yes (Other)
  Sender: FDA-Public Use
  Company Number: CHPA2008US13346

PATIENT
  Age: 38 Year
  Sex: Male

DRUGS (1)
  1. THRIVE [Suspect]
     Indication: SMOKING CESSATION THERAPY
     Dosage: 16 MG, QD, ORAL
     Route: 048

REACTIONS (1)
  - INTENTIONAL DRUG MISUSE [None]
